FAERS Safety Report 8819537 (Version 1)
Quarter: 2012Q4

REPORT INFORMATION
  Report Type: 
  Country: US (occurrence: US)
  Receive Date: 20120930
  Receipt Date: 20120930
  Transmission Date: 20130627
  Serious: No
  Sender: FDA-Public Use
  Company Number: US-009507513-1209USA011067

PATIENT
  Sex: Female

DRUGS (1)
  1. NUVARING [Suspect]
     Dosage: 1 ring in for 3 weeks/out for 1 week
     Route: 067

REACTIONS (2)
  - Product quality issue [Unknown]
  - Device expulsion [Unknown]
